FAERS Safety Report 8816487 (Version 2)
Quarter: 2012Q4

REPORT INFORMATION
  Report Type: 
  Country: DE (occurrence: None)
  Receive Date: 20120927
  Receipt Date: 20121004
  Transmission Date: 20130627
  Serious: Yes (Death, Life-Threatening)
  Sender: FDA-Public Use
  Company Number: AUR-APL-2012-04066

PATIENT
  Age: 79 Year
  Sex: Female

DRUGS (8)
  1. METFORMIN (METFORMIN) [Suspect]
     Indication: TYPE II DIABETES MELLITUS
     Route: 048
  2. ASS (ACETYLSALICYLIC ACID) [Concomitant]
  3. METOPROLOL (METOPROLOL) [Concomitant]
  4. CYTOBION (CYANOCOBALAMIN) [Concomitant]
  5. KEPPRA (LEVETIRACETAM) [Concomitant]
  6. NOVALGIN (NOVO-PETRIN) [Concomitant]
  7. FURO (FUROSEMIDE) [Concomitant]
  8. TRAMAL (TRAMADOL) [Concomitant]

REACTIONS (3)
  - Renal failure acute [None]
  - Lactic acidosis [None]
  - Prothrombin time prolonged [None]
